FAERS Safety Report 11222487 (Version 2)
Quarter: 2015Q3

REPORT INFORMATION
  Report Type: Spontaneous
  Country: BR (occurrence: BR)
  Receive Date: 20150626
  Receipt Date: 20150814
  Transmission Date: 20151125
  Serious: Yes (Hospitalization, Other)
  Sender: FDA-Public Use
  Company Number: BR-ABBVIE-15P-020-1416455-00

PATIENT
  Sex: Female
  Weight: 69.5 kg

DRUGS (3)
  1. SYNTHROID [Suspect]
     Active Substance: LEVOTHYROXINE SODIUM
     Indication: THYROID DISORDER
     Route: 048
     Dates: start: 2007, end: 2009
  2. SYNTHROID [Suspect]
     Active Substance: LEVOTHYROXINE SODIUM
     Dosage: 100MCG, 5 DAYS IN A WEEK; IN THE MORNING
     Route: 048
  3. SYNTHROID [Suspect]
     Active Substance: LEVOTHYROXINE SODIUM
     Dosage: SHE USES 88MCG TWICE IN A WEEK; IN THE MORNING
     Route: 048
     Dates: start: 2009

REACTIONS (2)
  - Ageusia [Recovered/Resolved]
  - Thyroid cancer [Recovered/Resolved]

NARRATIVE: CASE EVENT DATE: 2009
